FAERS Safety Report 8726858 (Version 2)
Quarter: 2012Q4

REPORT INFORMATION
  Report Type: 
  Country: US (occurrence: US)
  Receive Date: 20120816
  Receipt Date: 20121206
  Transmission Date: 20130627
  Serious: Yes (Hospitalization)
  Sender: FDA-Public Use
  Company Number: US-ROCHE-1099205

PATIENT
  Sex: Female

DRUGS (1)
  1. CATHFLO ACTIVASE [Suspect]
     Indication: DEVICE OCCLUSION
     Route: 065

REACTIONS (3)
  - Pulmonary embolism [Unknown]
  - Deep vein thrombosis [Unknown]
  - Device occlusion [Unknown]
